FAERS Safety Report 6583145-X (Version None)
Quarter: 2010Q1

REPORT INFORMATION
  Report Type: 
  Country: None (occurrence: None)
  Receive Date: 20100216
  Receipt Date: 20100209
  Transmission Date: 20100710
  Serious: Yes (Hospitalization)
  Sender: FDA-Public Use
  Company Number: FR-ROCHE-684773

PATIENT
  Sex: Female
  Weight: 82 kg

DRUGS (1)
  1. BEVACIZUMAB [Suspect]
     Indication: INFLAMMATORY CARCINOMA OF THE BREAST
     Dosage: THERAPY TEMPORARILY INTERRUPTED, DATE OF LAST DOSE PRIOR TO SAE 21 JANUARY 2010
     Route: 042
     Dates: start: 20090828

REACTIONS (1)
  - APPENDICITIS [None]
